FAERS Safety Report 12278125 (Version 4)
Quarter: 2016Q3

REPORT INFORMATION
  Report Type: Other
  Country: FR (occurrence: FR)
  Receive Date: 20160418
  Receipt Date: 20160921
  Transmission Date: 20161109
  Serious: Yes (Hospitalization, Other)
  Sender: FDA-Public Use
  Company Number: FR-ARIAD PHARMACEUTICALS, INC-2016FR006353

PATIENT
  Age: 65 Year
  Sex: Female

DRUGS (1)
  1. ICLUSIG [Suspect]
     Active Substance: PONATINIB
     Indication: CHRONIC MYELOID LEUKAEMIA
     Dosage: 30 MG, QD
     Route: 048
     Dates: start: 201501, end: 201503

REACTIONS (4)
  - Peripheral ischaemia [Recovered/Resolved]
  - Necrosis [Not Recovered/Not Resolved]
  - Arterial stenosis [Unknown]
  - Rash papular [Unknown]

NARRATIVE: CASE EVENT DATE: 20160303
